FAERS Safety Report 4506647-6 (Version None)
Quarter: 2004Q4

REPORT INFORMATION
  Report Type: 
  Country: None (occurrence: None)
  Receive Date: 20041117
  Receipt Date: 20041104
  Transmission Date: 20050328
  Serious: Yes (Death, Hospitalization, Other)
  Sender: FDA-Public Use
  Company Number: 2004065155

PATIENT
  Age: 85 Year
  Sex: Female

DRUGS (9)
  1. DIFLUCAN [Suspect]
     Indication: SYSTEMIC CANDIDA
     Dosage: 200 MG (100 MG, 2 IN 1 D), INTRAVENOUS
     Route: 042
     Dates: start: 20040731, end: 20040822
  2. NORPACE CAPSULE (DISOPYRAMIDE PHOSPHATE) (DISOPYRAMDIE PHOSPHATE) [Suspect]
     Indication: ATRIAL FIBRILLATION
     Dosage: 450 MG (150 MG, 3 IN 1 D),ORAL
     Route: 048
     Dates: start: 20040729, end: 20040827
  3. LEVOTHYROXINE SODIUM [Concomitant]
  4. ISOSORBIDE MONONITRATE [Concomitant]
  5. PROPRANOLOL HYDROCHLORIDE (PROPRANOLOL HYDROCHLORIDE) [Concomitant]
  6. PAROXETINE HCL [Concomitant]
  7. AMLODIPINE BESYLATE [Concomitant]
  8. ENOXAPARIN SODIUM [Concomitant]
  9. LEVOFLOXACIN [Concomitant]

REACTIONS (4)
  - ATRIAL FIBRILLATION [None]
  - CANDIDURIA [None]
  - CREATININE RENAL CLEARANCE DECREASED [None]
  - ELECTROCARDIOGRAM QT PROLONGED [None]
